FAERS Safety Report 13601985 (Version 1)
Quarter: 2017Q2

REPORT INFORMATION
  Report Type: Spontaneous
  Country: CL (occurrence: CL)
  Receive Date: 20170601
  Receipt Date: 20170601
  Transmission Date: 20170830
  Serious: Yes (Other)
  Sender: FDA-Public Use
  Company Number: CL-FRESENIUS KABI-FK201704658

PATIENT
  Age: 1 Month
  Sex: Male

DRUGS (4)
  1. OCTREOTIDE INJECTION (MANUFACTURER UNKNOWN) [Suspect]
     Active Substance: OCTREOTIDE
     Indication: HYPERINSULINAEMIC HYPOGLYCAEMIA
     Route: 065
  2. GLUCOSE [Concomitant]
     Active Substance: DEXTROSE
     Indication: HYPERINSULINAEMIC HYPOGLYCAEMIA
     Route: 041
  3. HYDROCHLOROTHIAZIDE. [Concomitant]
     Active Substance: HYDROCHLOROTHIAZIDE
     Indication: HYPERINSULINAEMIC HYPOGLYCAEMIA
     Route: 065
  4. GLUCAGON. [Concomitant]
     Active Substance: GLUCAGON
     Indication: HYPERINSULINAEMIC HYPOGLYCAEMIA
     Route: 065

REACTIONS (3)
  - Cholecystitis acute [Recovered/Resolved]
  - Product use in unapproved indication [Recovered/Resolved]
  - Product use issue [Recovered/Resolved]
